FAERS Safety Report 24534109 (Version 1)
Quarter: 2024Q4

REPORT INFORMATION
  Report Type: Spontaneous
  Country: US (occurrence: None)
  Receive Date: 20241021
  Receipt Date: 20241021
  Transmission Date: 20250115
  Serious: Yes (Death)
  Sender: Public
  Company Number: None

PATIENT
  Age: 81 Year
  Sex: Male
  Weight: 80.55 kg

DRUGS (12)
  1. REVLIMID [Suspect]
     Active Substance: LENALIDOMIDE
     Dosage: FREQUENCY : DAILY;?
     Route: 048
     Dates: start: 20210702, end: 20241003
  2. Calcium Regular 200mg [Concomitant]
  3. Calcium Regular 200mg [Concomitant]
  4. DEXAMETHASONE [Concomitant]
     Active Substance: DEXAMETHASONE
  5. Keppra 750 mg tablet [Concomitant]
  6. levothyroxine 25 mcg tablet [Concomitant]
  7. Renal Vitamin 0.8 mg tablet [Concomitant]
  8. NIFEDIPINE 30MG ER (CC) TABLETS [Concomitant]
  9. carbamazepine ER 200 mg tablet,extended release,12 hr [Concomitant]
  10. doxazosin 2 mg tablet [Concomitant]
  11. ROSUVASTATIN [Concomitant]
     Active Substance: ROSUVASTATIN
  12. simethicone 125 mg chewable tablet [Concomitant]

REACTIONS (1)
  - Death [None]

NARRATIVE: CASE EVENT DATE: 20241003
